FAERS Safety Report 6584473-4 (Version None)
Quarter: 2010Q1

REPORT INFORMATION
  Report Type: 
  Country: None (occurrence: None)
  Receive Date: 20100213
  Receipt Date: 20100213
  Transmission Date: 20100710
  Serious: Yes (Other)
  Sender: FDA-Public Use
  Company Number: None

PATIENT
  Age: 30 Year
  Sex: Female
  Weight: 122.9248 kg

DRUGS (2)
  1. RISPERIDONE [Suspect]
     Indication: BIPOLAR DISORDER
     Dosage: 4MG 1 PO
     Route: 048
     Dates: start: 20050210
  2. RISPERIDONE [Suspect]
     Indication: BIPOLAR DISORDER
     Dosage: 4MG 1 PO
     Route: 048
     Dates: start: 20050310

REACTIONS (1)
  - MANIA [None]
